FAERS Safety Report 6891994-3 (Version None)
Quarter: 2010Q3

REPORT INFORMATION
  Report Type: 
  Country: None (occurrence: None)
  Receive Date: 20100731
  Receipt Date: 20080112
  Transmission Date: 20110219
  Serious: No
  Sender: FDA-Public Use
  Company Number: US-PFIZER INC-2007087666

PATIENT
  Sex: Female

DRUGS (4)
  1. NORVASC [Suspect]
     Indication: CARDIOVASCULAR EVENT PROPHYLAXIS
  2. XALATAN [Suspect]
     Indication: GLAUCOMA
     Dates: start: 20060101
  3. CORDARONE [Concomitant]
  4. WARFARIN SODIUM [Concomitant]
     Dates: start: 19950101

REACTIONS (5)
  - GROIN PAIN [None]
  - MUSCLE SPASMS [None]
  - PAIN IN EXTREMITY [None]
  - SCLERAL DISCOLOURATION [None]
  - VISION BLURRED [None]
